FAERS Safety Report 24794479 (Version 3)
Quarter: 2025Q3

REPORT INFORMATION
  Report Type: Report from Study
  Country: US (occurrence: US)
  Receive Date: 20241231
  Receipt Date: 20250809
  Transmission Date: 20251020
  Serious: Yes (Other)
  Sender: ALEXION PHARMACEUTICALS
  Company Number: US-AstraZeneca-CH-00774962A

PATIENT
  Sex: Male

DRUGS (1)
  1. OLAPARIB [Suspect]
     Active Substance: OLAPARIB
     Dosage: TAKE 2 TABLETS BY MOUTH 2 TIMES A DAY
     Route: 065

REACTIONS (5)
  - Brain neoplasm [Unknown]
  - Astrocytoma malignant [Unknown]
  - Neoplasm [Unknown]
  - Stress [Unknown]
  - Off label use [Unknown]
